FAERS Safety Report 4437558-2 (Version None)
Quarter: 2004Q3

REPORT INFORMATION
  Report Type: 
  Country: None (occurrence: None)
  Receive Date: 20040831
  Receipt Date: 20040820
  Transmission Date: 20050211
  Serious: Yes (Life-Threatening, Hospitalization, Disabling)
  Sender: FDA-Public Use
  Company Number: 200416292US

PATIENT
  Sex: Male
  Weight: 62.9 kg

DRUGS (1)
  1. DOCETAXEL [Suspect]
     Indication: NON-SMALL CELL LUNG CANCER STAGE IV
     Route: 042
     Dates: start: 20040729, end: 20040729

REACTIONS (16)
  - ARTHRALGIA [None]
  - ASTHENIA [None]
  - DEHYDRATION [None]
  - DIARRHOEA [None]
  - DYSPNOEA [None]
  - FEBRILE NEUTROPENIA [None]
  - HYPOCALCAEMIA [None]
  - HYPOKALAEMIA [None]
  - HYPOTENSION [None]
  - HYPOXIA [None]
  - MUCOSAL INFLAMMATION [None]
  - NAUSEA [None]
  - RESPIRATORY RATE INCREASED [None]
  - VOMITING [None]
  - WHEEZING [None]
  - WHITE BLOOD CELL COUNT DECREASED [None]
